FAERS Safety Report 17342651 (Version 1)
Quarter: 2020Q1

REPORT INFORMATION
  Report Type: Spontaneous
  Country: US (occurrence: US)
  Receive Date: 20200129
  Receipt Date: 20200129
  Transmission Date: 20200409
  Serious: No
  Sender: FDA-Public Use
  Company Number: US-ALLERGAN-1912550US

PATIENT
  Age: 47 Year
  Sex: Female

DRUGS (5)
  1. UNKNOWN FILLER FOR LIPS [Concomitant]
     Indication: SKIN WRINKLING
     Dosage: UNK
  2. JUVEDERM [Concomitant]
     Active Substance: HYALURONIC ACID
     Indication: SKIN WRINKLING
     Dosage: UNK, SINGLE
     Dates: start: 20190319, end: 20190319
  3. BOTOX COSMETIC [Suspect]
     Active Substance: ONABOTULINUMTOXINA
     Indication: SKIN WRINKLING
     Dosage: ACTUAL: 20 U GLABELLA, 20 U FOREHEAD
     Route: 030
     Dates: start: 20190319, end: 20190319
  4. BOTOX COSMETIC [Suspect]
     Active Substance: ONABOTULINUMTOXINA
     Indication: SKIN WRINKLING
  5. CLARITIN [Concomitant]
     Active Substance: LORATADINE
     Dosage: UNK, QD
     Route: 065

REACTIONS (7)
  - Product preparation error [Unknown]
  - Wrong technique in product usage process [Unknown]
  - Facial pain [Unknown]
  - Therapeutic product effect decreased [Unknown]
  - Contusion [Unknown]
  - Pain [Unknown]
  - Insomnia [Unknown]

NARRATIVE: CASE EVENT DATE: 20190319
